FAERS Safety Report 6116645-7 (Version None)
Quarter: 2009Q1

REPORT INFORMATION
  Report Type: 
  Country: None (occurrence: None)
  Receive Date: 20090314
  Receipt Date: 20081222
  Transmission Date: 20090719
  Serious: No
  Sender: FDA-Public Use
  Company Number: US-ABBOTT-08P-163-0494560-00

PATIENT
  Sex: Female
  Weight: 44.492 kg

DRUGS (6)
  1. HUMIRA [Suspect]
     Indication: CROHN'S DISEASE
     Route: 058
     Dates: start: 20080901
  2. HUMIRA [Suspect]
     Indication: RHEUMATOID ARTHRITIS
  3. MERCAPTOPURINE [Concomitant]
     Indication: CROHN'S DISEASE
  4. MERCAPTOPURINE [Concomitant]
     Indication: RHEUMATOID ARTHRITIS
  5. NEXIUM [Concomitant]
     Indication: GASTROOESOPHAGEAL REFLUX DISEASE
  6. ANAFLEX [Concomitant]
     Indication: RHEUMATOID ARTHRITIS

REACTIONS (2)
  - DRUG DELIVERY SYSTEM MALFUNCTION [None]
  - INCORRECT DOSE ADMINISTERED [None]
